FAERS Safety Report 8838598 (Version 1)
Quarter: 2012Q4

REPORT INFORMATION
  Report Type: 
  Country: US (occurrence: US)
  Receive Date: 20121012
  Receipt Date: 20121012
  Transmission Date: 20130627
  Serious: Yes (Death)
  Sender: FDA-Public Use
  Company Number: US-ASTRAZENECA-2012SE77292

PATIENT
  Age: 32 Year
  Sex: Female

DRUGS (5)
  1. QUETIAPINE [Suspect]
     Route: 048
  2. CITALOPRAM [Suspect]
  3. GABAPENTIN [Suspect]
  4. METHADONE [Suspect]
  5. KEPPRA [Suspect]

REACTIONS (2)
  - Completed suicide [Fatal]
  - Toxicity to various agents [Fatal]
